FAERS Safety Report 8128883-2 (Version None)
Quarter: 2012Q1

REPORT INFORMATION
  Report Type: 
  Country: None (occurrence: None)
  Receive Date: 20120210
  Receipt Date: 20120131
  Transmission Date: 20120608
  Serious: Yes (Life-Threatening, Hospitalization)
  Sender: FDA-Public Use
  Company Number: JP-PFIZER INC-2012026625

PATIENT
  Age: 63 Year
  Sex: Male
  Weight: 64.1 kg

DRUGS (6)
  1. CRIZOTINIB [Suspect]
     Indication: NON-SMALL CELL LUNG CANCER
     Dosage: 250 MG, 2X/DAY
     Route: 048
     Dates: start: 20111213, end: 20120130
  2. WARFARIN [Concomitant]
     Indication: THROMBOSIS PROPHYLAXIS
     Dosage: UNK
     Route: 048
     Dates: start: 20100723
  3. NEO-MERCAZOLE TAB [Concomitant]
     Indication: HYPERTHYROIDISM
     Dosage: UNK
     Route: 048
     Dates: start: 20010101
  4. LEVITRA [Concomitant]
     Indication: ERECTILE DYSFUNCTION
     Dosage: UNK
     Route: 048
     Dates: start: 20020101
  5. MAGNESIUM SULFATE [Concomitant]
     Indication: CONSTIPATION
     Dosage: UNK
     Route: 048
     Dates: start: 20120104
  6. LANSOPRAZOLE [Concomitant]
     Indication: GASTRIC ULCER
     Dosage: UNK
     Route: 048
     Dates: start: 20100804

REACTIONS (1)
  - PNEUMONITIS [None]
